FAERS Safety Report 9199444 (Version 1)
Quarter: 2013Q1

REPORT INFORMATION
  Report Type: Spontaneous
  Country: US (occurrence: US)
  Receive Date: 20130329
  Receipt Date: 20130329
  Transmission Date: 20140127
  Serious: No
  Sender: FDA-Public Use
  Company Number: US-PFIZER INC-2013100258

PATIENT
  Sex: 0

DRUGS (2)
  1. GABAPENTIN [Suspect]
     Dosage: UNK
  2. CYMBALTA [Suspect]
     Dosage: UNK

REACTIONS (1)
  - Burning sensation [Unknown]
